FAERS Safety Report 5278347-9 (Version None)
Quarter: 2007Q1

REPORT INFORMATION
  Report Type: 
  Country: None (occurrence: None)
  Receive Date: 20070322
  Receipt Date: 20070312
  Transmission Date: 20070707
  Serious: Yes (Other)
  Sender: FDA-Public Use
  Company Number: 2007RR-06292

PATIENT
  Age: 18 Year
  Sex: Female

DRUGS (2)
  1. FRUSEMIDE(FUROSEMIDE) UNKNOWN [Suspect]
     Dosage: 120 MG, QD
  2. PREDNISOLONE [Concomitant]

REACTIONS (10)
  - BLOOD ELECTROLYTES ABNORMAL [None]
  - ENCEPHALOPATHY [None]
  - FACE OEDEMA [None]
  - HYPOREFLEXIA [None]
  - HYPOVENTILATION [None]
  - HYPOVOLAEMIA [None]
  - LOSS OF CONSCIOUSNESS [None]
  - OEDEMA PERIPHERAL [None]
  - RESPIRATORY FAILURE [None]
  - SEPSIS [None]
